FAERS Safety Report 5407171-9 (Version None)
Quarter: 2007Q3

REPORT INFORMATION
  Report Type: 
  Country: None (occurrence: None)
  Receive Date: 20070807
  Receipt Date: 20070731
  Transmission Date: 20080115
  Serious: Yes (Disabling)
  Sender: FDA-Public Use
  Company Number: US-MERCK-0708USA00205

PATIENT
  Age: 70 Year
  Sex: Male

DRUGS (7)
  1. JANUVIA [Suspect]
     Indication: DIABETES MELLITUS
     Route: 048
     Dates: start: 20070101, end: 20070705
  2. GLUCOPHAGE [Concomitant]
     Route: 065
  3. ACTOS [Concomitant]
     Route: 065
  4. ALTACE [Concomitant]
     Route: 065
  5. LIPITOR [Concomitant]
     Route: 065
  6. TOPROL-XL [Concomitant]
     Route: 065
  7. LASIX [Concomitant]
     Route: 065

REACTIONS (2)
  - BLISTER [None]
  - SKIN GRAFT [None]
